FAERS Safety Report 11204021 (Version 2)
Quarter: 2021Q2

REPORT INFORMATION
  Report Type: Spontaneous
  Country: FR (occurrence: FR)
  Receive Date: 20150619
  Receipt Date: 20210616
  Transmission Date: 20210716
  Serious: Yes (Congenital Anomaly, Other)
  Sender: FDA-Public Use
  Company Number: FR-ABBVIE-15P-056-1412144-00

PATIENT
  Sex: Male

DRUGS (3)
  1. FOLIC ACID. [Concomitant]
     Active Substance: FOLIC ACID
     Indication: PRODUCT USED FOR UNKNOWN INDICATION
  2. TEGRETOL [Suspect]
     Active Substance: CARBAMAZEPINE
     Indication: MATERNAL EXPOSURE TIMING UNSPECIFIED
     Route: 064
  3. VALPROATE SODIUM/VALPROIC ACID [Suspect]
     Active Substance: VALPROIC ACID
     Indication: MATERNAL EXPOSURE TIMING UNSPECIFIED
     Route: 064

REACTIONS (15)
  - Anxiety [Unknown]
  - Ear infection [Unknown]
  - Language disorder [Not Recovered/Not Resolved]
  - Psychomotor hyperactivity [Unknown]
  - Educational problem [Unknown]
  - Foetal exposure during pregnancy [Not Recovered/Not Resolved]
  - Myopia [Unknown]
  - Nasopharyngitis [Unknown]
  - Attention deficit hyperactivity disorder [Unknown]
  - Autism spectrum disorder [Unknown]
  - Respiratory disorder [Unknown]
  - Bronchiolitis [Unknown]
  - Tonsillitis [Unknown]
  - Developmental delay [Not Recovered/Not Resolved]
  - Hypertonia [Unknown]

NARRATIVE: CASE EVENT DATE: 2015
